FAERS Safety Report 7440955-4 (Version None)
Quarter: 2011Q2

REPORT INFORMATION
  Report Type: 
  Country: None (occurrence: None)
  Receive Date: 20110427
  Receipt Date: 20110420
  Transmission Date: 20111010
  Serious: Yes (Other)
  Sender: FDA-Public Use
  Company Number: US-PFIZER INC-2011033589

PATIENT
  Sex: Male

DRUGS (2)
  1. SUTENT [Suspect]
     Indication: METASTATIC RENAL CELL CARCINOMA
     Dosage: 50 MG, 1X/DAY, 4 WEEKS ON/2 WEEKS OFF
     Route: 048
     Dates: start: 20100701, end: 20110301
  2. SUTENT [Suspect]
     Dosage: 12.5 MG, 3X/DAY, X 28 DAYS Q 42 DAYS
     Route: 048
     Dates: start: 20110321

REACTIONS (2)
  - BLOOD PRESSURE DECREASED [None]
  - THYROID DISORDER [None]
